FAERS Safety Report 12138444 (Version 5)
Quarter: 2017Q3

REPORT INFORMATION
  Report Type: Spontaneous
  Country: US (occurrence: US)
  Receive Date: 20160302
  Receipt Date: 20170727
  Transmission Date: 20171127
  Serious: No
  Sender: FDA-Public Use
  Company Number: US-PFIZER INC-2016080707

PATIENT
  Age: 78 Year
  Sex: Female
  Weight: 63 kg

DRUGS (2)
  1. ALPRAZOLAM. [Suspect]
     Active Substance: ALPRAZOLAM
     Indication: ANXIETY
     Dosage: 2 MG, (1 MG X2), UNK
  2. ALPRAZOLAM. [Suspect]
     Active Substance: ALPRAZOLAM
     Indication: TREMOR

REACTIONS (8)
  - Malaise [Not Recovered/Not Resolved]
  - Reaction to excipient [Recovered/Resolved]
  - Drug intolerance [Not Recovered/Not Resolved]
  - Drug hypersensitivity [Not Recovered/Not Resolved]
  - Tremor [Not Recovered/Not Resolved]
  - Drug dispensing error [Unknown]
  - Weight increased [Not Recovered/Not Resolved]
  - Paraesthesia [Not Recovered/Not Resolved]
